FAERS Safety Report 7074680-9 (Version None)
Quarter: 2010Q4

REPORT INFORMATION
  Report Type: 
  Country: None (occurrence: None)
  Receive Date: 20101029
  Receipt Date: 20101022
  Transmission Date: 20110411
  Serious: Yes (Hospitalization)
  Sender: FDA-Public Use
  Company Number: B0681902A

PATIENT
  Age: 17 Year
  Sex: Male

DRUGS (1)
  1. ALQUEN [Suspect]
     Route: 048
     Dates: start: 20100921, end: 20100923

REACTIONS (7)
  - ABDOMINAL PAIN UPPER [None]
  - CHOLURIA [None]
  - JAUNDICE [None]
  - LIVER DISORDER [None]
  - NAUSEA [None]
  - TRANSAMINASES INCREASED [None]
  - VOMITING [None]
